FAERS Safety Report 13977886 (Version 1)
Quarter: 2017Q3

REPORT INFORMATION
  Report Type: Spontaneous
  Country: GB (occurrence: GB)
  Receive Date: 20170915
  Receipt Date: 20170915
  Transmission Date: 20171128
  Serious: Yes (Other)
  Sender: FDA-Public Use
  Company Number: GB-PFIZER INC-2017396657

PATIENT
  Age: 80 Year
  Sex: Female

DRUGS (1)
  1. BESITRAN [Suspect]
     Active Substance: SERTRALINE HYDROCHLORIDE
     Dosage: 50 MG, UNK

REACTIONS (5)
  - Hypersensitivity [Unknown]
  - Contusion [Unknown]
  - Headache [Unknown]
  - Fall [Unknown]
  - Peripheral swelling [Unknown]
